FAERS Safety Report 25346483 (Version 1)
Quarter: 2025Q2

REPORT INFORMATION
  Report Type: Spontaneous
  Country: US (occurrence: US)
  Receive Date: 20250522
  Receipt Date: 20250522
  Transmission Date: 20250717
  Serious: Yes (Other)
  Sender: MYLAN
  Company Number: US-MYLANLABS-2025M1042555

PATIENT
  Age: 9 Year
  Sex: Female

DRUGS (10)
  1. LEVETIRACETAM [Suspect]
     Active Substance: LEVETIRACETAM
     Indication: Severe myoclonic epilepsy of infancy
  2. VALPROIC ACID [Suspect]
     Active Substance: VALPROIC ACID
     Indication: Severe myoclonic epilepsy of infancy
     Dosage: 34 MILLIGRAM/KILOGRAM, QD
  3. CANNABIDIOL [Suspect]
     Active Substance: CANNABIDIOL
     Indication: Severe myoclonic epilepsy of infancy
     Dosage: 18 MILLIGRAM/KILOGRAM, QD
  4. CARBAMAZEPINE [Suspect]
     Active Substance: CARBAMAZEPINE
     Indication: Severe myoclonic epilepsy of infancy
  5. LAMOTRIGINE [Suspect]
     Active Substance: LAMOTRIGINE
     Indication: Severe myoclonic epilepsy of infancy
  6. CLOBAZAM [Suspect]
     Active Substance: CLOBAZAM
     Indication: Severe myoclonic epilepsy of infancy
     Dosage: 0.3 MILLIGRAM/KILOGRAM, QD (RECEIVED A MAX DOSE 1.8MG/KG/DAY, AND LATER REDUCED DUE TO BEHAVIORAL ISSUES)
  7. CLOBAZAM [Suspect]
     Active Substance: CLOBAZAM
  8. FENFLURAMINE [Suspect]
     Active Substance: FENFLURAMINE
     Indication: Severe myoclonic epilepsy of infancy
     Dosage: 0.6 MILLIGRAM/KILOGRAM, QD
  9. TOPIRAMATE [Suspect]
     Active Substance: TOPIRAMATE
     Indication: Severe myoclonic epilepsy of infancy
     Dosage: 11.5 MILLIGRAM/KILOGRAM, QD
  10. DIAZEPAM [Concomitant]
     Active Substance: DIAZEPAM
     Indication: Severe myoclonic epilepsy of infancy

REACTIONS (1)
  - Drug ineffective [Unknown]
